FAERS Safety Report 4806767-2 (Version None)
Quarter: 2005Q4

REPORT INFORMATION
  Report Type: 
  Country: None (occurrence: None)
  Receive Date: 20051024
  Receipt Date: 20051011
  Transmission Date: 20060501
  Serious: Yes (Hospitalization)
  Sender: FDA-Public Use
  Company Number: FR-RB-2124-2005

PATIENT
  Age: 10 Day
  Sex: Female
  Weight: 2.2 kg

DRUGS (1)
  1. BUPRENORPHINE HCL [Suspect]
     Indication: DRUG USE FOR UNKNOWN INDICATION
     Route: 064

REACTIONS (2)
  - CONVULSION [None]
  - DRUG WITHDRAWAL SYNDROME NEONATAL [None]
